FAERS Safety Report 7821200-4 (Version None)
Quarter: 2011Q4

REPORT INFORMATION
  Report Type: 
  Country: None (occurrence: None)
  Receive Date: 20111018
  Receipt Date: 20111017
  Transmission Date: 20120403
  Serious: Yes (Other)
  Sender: FDA-Public Use
  Company Number: US-PFIZER INC-2011248710

PATIENT
  Age: 50 Year
  Sex: Female

DRUGS (1)
  1. PREMPRO [Suspect]
     Dosage: UNK

REACTIONS (5)
  - SECRETION DISCHARGE [None]
  - DEPRESSION [None]
  - ILL-DEFINED DISORDER [None]
  - ASTHENIA [None]
  - HYPOTHYROIDISM [None]
